FAERS Safety Report 19907292 (Version 2)
Quarter: 2021Q4

REPORT INFORMATION
  Report Type: Spontaneous
  Country: JP (occurrence: JP)
  Receive Date: 20211001
  Receipt Date: 20211008
  Transmission Date: 20220304
  Serious: Yes (Other)
  Sender: FDA-Public Use
  Company Number: JP-GLAXOSMITHKLINE-JP2021JPN203240

PATIENT
  Age: 9 Decade
  Sex: Male

DRUGS (1)
  1. ZOVIRAX [Suspect]
     Active Substance: ACYCLOVIR
     Indication: Herpes zoster
     Dosage: 750 MG/DAY (3.8 MG/KG, EVERY 8 HOURS)
     Route: 041

REACTIONS (8)
  - Toxic encephalopathy [Unknown]
  - Altered state of consciousness [Recovered/Resolved]
  - Cheyne-Stokes respiration [Recovering/Resolving]
  - Renal impairment [Recovered/Resolved]
  - Anuria [Unknown]
  - Hypophagia [Unknown]
  - Nephropathy toxic [Recovered/Resolved]
  - Nervous system disorder [Unknown]
